FAERS Safety Report 11747476 (Version 3)
Quarter: 2015Q4

REPORT INFORMATION
  Report Type: Report from Study
  Country: US (occurrence: US)
  Receive Date: 20151117
  Receipt Date: 20151217
  Transmission Date: 20160304
  Serious: No
  Sender: FDA-Public Use
  Company Number: US-ASTRAZENECA-2013SE64529

PATIENT
  Age: 13055 Day
  Sex: Female
  Weight: 73.5 kg

DRUGS (33)
  1. ORAL CONTRACEPTIVE NOS [Concomitant]
     Active Substance: UNSPECIFIED INGREDIENT
     Indication: PROPHYLACTIC CHEMOTHERAPY
  2. DICYCLOMINE [Concomitant]
     Active Substance: DICYCLOMINE HYDROCHLORIDE
     Indication: ABDOMINAL PAIN UPPER
     Route: 048
     Dates: start: 2013
  3. OXYCODONE [Concomitant]
     Active Substance: OXYCODONE
     Indication: PAIN
     Dosage: 7.5/325 MG DAILY
     Route: 048
     Dates: start: 201405
  4. NEXIUM [Suspect]
     Active Substance: ESOMEPRAZOLE MAGNESIUM
     Indication: ABDOMINAL PAIN UPPER
     Route: 048
     Dates: start: 20130625
  5. NAPROXEN. [Concomitant]
     Active Substance: NAPROXEN
     Indication: ARTHRITIS
     Route: 048
     Dates: start: 2010
  6. VITAMIN E [Concomitant]
     Active Substance: .ALPHA.-TOCOPHEROL
     Indication: PROPHYLAXIS
  7. NEXIUM [Suspect]
     Active Substance: ESOMEPRAZOLE MAGNESIUM
     Indication: GASTROOESOPHAGEAL REFLUX DISEASE
     Route: 048
     Dates: start: 20130625
  8. NEXIUM [Suspect]
     Active Substance: ESOMEPRAZOLE MAGNESIUM
     Indication: EPIGASTRIC DISCOMFORT
     Route: 048
     Dates: end: 20130817
  9. NEXIUM [Suspect]
     Active Substance: ESOMEPRAZOLE MAGNESIUM
     Indication: VOMITING
     Route: 048
     Dates: end: 20130817
  10. SYSTANE (HYPROMELLOSE 2910 (4000 MPA.S)) [Concomitant]
     Active Substance: HYPROMELLOSE 2910 (4000 MPA.S)
  11. FLUOXETINE [Concomitant]
     Active Substance: FLUOXETINE HYDROCHLORIDE
     Indication: ANXIETY DISORDER
     Route: 048
     Dates: start: 201503
  12. CLOTRIMAZOLE BETAMETHASONE [Concomitant]
     Indication: URTICARIA
  13. VITAMIN B12 [Concomitant]
     Active Substance: CYANOCOBALAMIN
     Indication: PROPHYLAXIS
  14. VITAMIN C [Concomitant]
     Active Substance: ASCORBIC ACID
     Indication: PROPHYLAXIS
  15. COMBIVENT RESPIMAT [Concomitant]
     Active Substance: ALBUTEROL SULFATE\IPRATROPIUM BROMIDE
     Indication: ASTHMA
     Route: 055
     Dates: start: 2010
  16. BREO ELLIPTA [Concomitant]
     Active Substance: FLUTICASONE FUROATE\VILANTEROL TRIFENATATE
     Indication: ASTHMA
     Route: 055
     Dates: start: 201501
  17. AMITRIPTYLINE [Concomitant]
     Active Substance: AMITRIPTYLINE
     Indication: COMPLEX REGIONAL PAIN SYNDROME
     Route: 048
     Dates: start: 2007
  18. GARLIC. [Concomitant]
     Active Substance: GARLIC
     Indication: PROPHYLAXIS
  19. SYMBICORT [Suspect]
     Active Substance: BUDESONIDE\FORMOTEROL FUMARATE DIHYDRATE
     Indication: ASTHMA
     Dosage: 160 UG BID
     Route: 055
     Dates: start: 2010
  20. NEXIUM [Suspect]
     Active Substance: ESOMEPRAZOLE MAGNESIUM
     Indication: VOMITING
     Route: 048
     Dates: start: 20130625
  21. SINGULAIR [Concomitant]
     Active Substance: MONTELUKAST SODIUM
     Indication: ASTHMA
     Route: 055
     Dates: start: 2010
  22. FEXOFENADINE [Concomitant]
     Active Substance: FEXOFENADINE\FEXOFENADINE HYDROCHLORIDE
     Indication: HYPERSENSITIVITY
     Route: 048
     Dates: start: 2010
  23. RANITIDINE [Concomitant]
     Active Substance: RANITIDINE\RANITIDINE HYDROCHLORIDE
     Indication: ABDOMINAL DISCOMFORT
     Route: 048
     Dates: start: 201501
  24. IRON [Concomitant]
     Active Substance: IRON
     Indication: BORDERLINE OVARIAN TUMOUR
  25. NEXIUM [Suspect]
     Active Substance: ESOMEPRAZOLE MAGNESIUM
     Indication: HYPERCHLORHYDRIA
     Route: 048
     Dates: start: 20130625
  26. LORAZEPAM. [Concomitant]
     Active Substance: LORAZEPAM
     Indication: PANIC ATTACK
     Route: 048
     Dates: start: 201411
  27. MELOXICAM. [Concomitant]
     Active Substance: MELOXICAM
     Indication: MIGRAINE
     Route: 048
     Dates: start: 2014
  28. NEXIUM [Suspect]
     Active Substance: ESOMEPRAZOLE MAGNESIUM
     Indication: EPIGASTRIC DISCOMFORT
     Route: 048
     Dates: start: 20130625
  29. NEXIUM [Suspect]
     Active Substance: ESOMEPRAZOLE MAGNESIUM
     Indication: HYPERCHLORHYDRIA
     Route: 048
     Dates: end: 20130817
  30. NEXIUM [Suspect]
     Active Substance: ESOMEPRAZOLE MAGNESIUM
     Indication: GASTROOESOPHAGEAL REFLUX DISEASE
     Route: 048
     Dates: end: 20130817
  31. NEXIUM [Suspect]
     Active Substance: ESOMEPRAZOLE MAGNESIUM
     Indication: ABDOMINAL PAIN UPPER
     Route: 048
     Dates: end: 20130817
  32. VITAMIN D3 [Concomitant]
     Active Substance: CHOLECALCIFEROL
     Indication: PROPHYLAXIS
  33. BENZONATATE. [Concomitant]
     Active Substance: BENZONATATE
     Indication: COUGH

REACTIONS (27)
  - Gastrooesophageal reflux disease [Unknown]
  - Anaemia [Unknown]
  - Gastric infection [Unknown]
  - Oesophageal infection [Unknown]
  - Feeding disorder [Unknown]
  - Paraesthesia [Unknown]
  - Off label use [Unknown]
  - Gastritis [Unknown]
  - Tumour rupture [Unknown]
  - Pneumonia [Unknown]
  - Dyspepsia [Unknown]
  - Influenza [Unknown]
  - Pain [Unknown]
  - Nausea [Unknown]
  - Fungal infection [Unknown]
  - Abdominal pain [Unknown]
  - Immune system disorder [Unknown]
  - Benign ovarian tumour [Recovered/Resolved]
  - Regurgitation [Unknown]
  - Vomiting [Unknown]
  - Malaise [Unknown]
  - Condition aggravated [Unknown]
  - Bronchitis [Unknown]
  - Weight increased [Unknown]
  - Impaired healing [Unknown]
  - Drug dose omission [Unknown]
  - Intentional product misuse [Unknown]

NARRATIVE: CASE EVENT DATE: 20130817
